FAERS Safety Report 5253701-X (Version None)
Quarter: 2007Q1

REPORT INFORMATION
  Report Type: 
  Country: None (occurrence: None)
  Receive Date: 20070301
  Receipt Date: 20070222
  Transmission Date: 20070707
  Serious: Yes (Hospitalization)
  Sender: FDA-Public Use
  Company Number: FR-MERCK-0702FRA00074

PATIENT
  Age: 29 Year
  Sex: Female

DRUGS (1)
  1. ALDOMET [Suspect]
     Indication: PREGNANCY INDUCED HYPERTENSION
     Route: 048
     Dates: start: 20070101, end: 20070101

REACTIONS (3)
  - NAUSEA [None]
  - VERTIGO [None]
  - VESTIBULAR DISORDER [None]
